FAERS Safety Report 16703873 (Version 1)
Quarter: 2019Q3

REPORT INFORMATION
  Report Type: Spontaneous
  Country: FR (occurrence: FR)
  Receive Date: 20190814
  Receipt Date: 20190814
  Transmission Date: 20191004
  Serious: Yes (Other)
  Sender: FDA-Public Use
  Company Number: FR-MYLANLABS-2019M1074951

PATIENT
  Age: 45 Year
  Sex: Male
  Weight: 35 kg

DRUGS (6)
  1. EUPANTOL [Suspect]
     Active Substance: PANTOPRAZOLE SODIUM
     Indication: PRODUCT USED FOR UNKNOWN INDICATION
     Dosage: 40 MILLIGRAM, QD
     Route: 042
     Dates: start: 20190219, end: 20190219
  2. CEFEPIME [Suspect]
     Active Substance: CEFEPIME HYDROCHLORIDE
     Indication: PNEUMONIA
     Dosage: 2 GRAM, QD
     Route: 042
     Dates: start: 20190219, end: 20190222
  3. METRONIDAZOLE. [Suspect]
     Active Substance: METRONIDAZOLE
     Indication: PNEUMONIA
     Dosage: 3 DOSAGE FORM, QD
     Route: 042
     Dates: start: 20190219, end: 20190224
  4. MIDAZOLAM [Suspect]
     Active Substance: MIDAZOLAM HYDROCHLORIDE
     Indication: SEDATION
     Dosage: 17.2 MILLIGRAM, QD
     Route: 042
     Dates: start: 20190219, end: 20190220
  5. SUFENTANIL [Suspect]
     Active Substance: SUFENTANIL
     Indication: SEDATION
     Dosage: 111 MICROGRAM, QD
     Route: 042
     Dates: start: 20190219, end: 20190220
  6. NORADRENALINE                      /00127501/ [Suspect]
     Active Substance: NOREPINEPHRINE
     Indication: PRODUCT USED FOR UNKNOWN INDICATION
     Dosage: 27.94 MILLIGRAM, QD
     Route: 042
     Dates: start: 20190219, end: 20190221

REACTIONS (1)
  - Encephalopathy [Recovering/Resolving]

NARRATIVE: CASE EVENT DATE: 20190220
